FAERS Safety Report 8276280-1 (Version None)
Quarter: 2012Q2

REPORT INFORMATION
  Report Type: 
  Country: None (occurrence: None)
  Receive Date: 20120412
  Receipt Date: 20120405
  Transmission Date: 20120825
  Serious: Yes (Other)
  Sender: FDA-Public Use
  Company Number: PHHY2011CA111776

PATIENT
  Sex: Female

DRUGS (1)
  1. GILENYA [Suspect]
     Indication: RELAPSING-REMITTING MULTIPLE SCLEROSIS
     Dosage: 0.5 MG, QD
     Route: 048
     Dates: start: 20111222, end: 20120326

REACTIONS (25)
  - DECREASED APPETITE [None]
  - CHROMATURIA [None]
  - HEART RATE DECREASED [None]
  - BLOOD ALKALINE PHOSPHATASE INCREASED [None]
  - PALPITATIONS [None]
  - DYSPEPSIA [None]
  - NAUSEA [None]
  - ALANINE AMINOTRANSFERASE INCREASED [None]
  - FEELING HOT [None]
  - JAUNDICE [None]
  - ABDOMINAL PAIN UPPER [None]
  - OCULAR ICTERUS [None]
  - YELLOW SKIN [None]
  - BLOOD BILIRUBIN INCREASED [None]
  - PRURITUS [None]
  - MUSCULOSKELETAL PAIN [None]
  - NASOPHARYNGITIS [None]
  - RASH ERYTHEMATOUS [None]
  - HEPATIC FUNCTION ABNORMAL [None]
  - GAMMA-GLUTAMYLTRANSFERASE INCREASED [None]
  - HEART RATE INCREASED [None]
  - HEPATIC ENZYME INCREASED [None]
  - PAIN [None]
  - CHEST PAIN [None]
  - BLOOD PRESSURE INCREASED [None]
